FAERS Safety Report 4470421-X (Version None)
Quarter: 2004Q3

REPORT INFORMATION
  Report Type: 
  Country: None (occurrence: None)
  Receive Date: 20040909
  Receipt Date: 20040519
  Transmission Date: 20050211
  Serious: No
  Sender: FDA-Public Use
  Company Number: US-JNJFOC-20040500538

PATIENT
  Sex: Female
  Weight: 102.0593 kg

DRUGS (2)
  1. NATRECOR [Suspect]
     Indication: CARDIAC FAILURE CONGESTIVE
     Dosage: 1 UG/KG, INTRAVENOUS
     Route: 042
     Dates: start: 20040428, end: 20040428
  2. NATRECOR [Suspect]
     Dosage: 0.01 UG/KG/MIN, INTRAVENOUS
     Route: 042
     Dates: start: 20040428, end: 20040428

REACTIONS (3)
  - HYPOTENSION [None]
  - MEDICATION ERROR [None]
  - OVERDOSE [None]
